FAERS Safety Report 4546299-2 (Version None)
Quarter: 2005Q1

REPORT INFORMATION
  Report Type: 
  Country: None (occurrence: None)
  Receive Date: 20050106
  Receipt Date: 20041220
  Transmission Date: 20050727
  Serious: Yes (Hospitalization)
  Sender: FDA-Public Use
  Company Number: JP-JNJFOC-20041106097

PATIENT
  Age: 86 Year
  Sex: Female

DRUGS (5)
  1. TAVANIC [Suspect]
     Indication: LUNG INFECTION
     Route: 049
     Dates: start: 20041009, end: 20041013
  2. DIGOXIN [Concomitant]
  3. NITRODERM [Concomitant]
  4. TILDIEM [Concomitant]
  5. COZAAR [Concomitant]

REACTIONS (6)
  - BLOOD CREATININE INCREASED [None]
  - CREATININE RENAL CLEARANCE DECREASED [None]
  - FALL [None]
  - OVERDOSE [None]
  - SOMNOLENCE [None]
  - TREMOR [None]
